FAERS Safety Report 20059285 (Version 1)
Quarter: 2021Q4

REPORT INFORMATION
  Report Type: Spontaneous
  Country: US (occurrence: None)
  Receive Date: 20211111
  Receipt Date: 20211111
  Transmission Date: 20220303
  Serious: Yes (Other)
  Sender: FDA-Public Use
  Company Number: 2021A800952

PATIENT
  Age: 68 Year
  Sex: Male

DRUGS (6)
  1. OLAPARIB [Suspect]
     Active Substance: OLAPARIB
     Indication: Hormone-refractory prostate cancer
     Route: 048
     Dates: start: 201912, end: 202007
  2. ENZALUTAMIDE [Concomitant]
     Active Substance: ENZALUTAMIDE
     Dates: start: 201801, end: 201905
  3. SIPULEUCEL-T [Concomitant]
     Active Substance: SIPULEUCEL-T
     Dates: start: 201803
  4. ABIRATERONE [Concomitant]
     Active Substance: ABIRATERONE
     Dates: start: 201907, end: 201911
  5. RUCAPARIB [Concomitant]
     Active Substance: RUCAPARIB
     Dates: start: 202007, end: 202008
  6. DOCETAXEL [Concomitant]
     Active Substance: DOCETAXEL
     Dates: start: 202009, end: 202103

REACTIONS (1)
  - Disease progression [Unknown]
